FAERS Safety Report 7871711-0 (Version None)
Quarter: 2011Q4

REPORT INFORMATION
  Report Type: 
  Country: None (occurrence: None)
  Receive Date: 20111029
  Receipt Date: 20110307
  Transmission Date: 20120403
  Serious: No
  Sender: FDA-Public Use
  Company Number: US-AMGEN-USASP2011012625

PATIENT
  Age: 40 Year
  Sex: Male

DRUGS (1)
  1. ENBREL [Suspect]
     Indication: PSORIATIC ARTHROPATHY
     Dosage: 25 MG, QMO
     Dates: start: 20050901

REACTIONS (5)
  - CHEST PAIN [None]
  - NEEDLE ISSUE [None]
  - NASOPHARYNGITIS [None]
  - SPUTUM ABNORMAL [None]
  - PRODUCTIVE COUGH [None]
